FAERS Safety Report 15796272 (Version 1)
Quarter: 2019Q1

REPORT INFORMATION
  Report Type: Spontaneous
  Country: US (occurrence: US)
  Receive Date: 20190108
  Receipt Date: 20190108
  Transmission Date: 20190417
  Serious: Yes (Other)
  Sender: FDA-Public Use
  Company Number: US-BIOGEN-2019BI00679667

PATIENT
  Age: 56 Year
  Sex: Female

DRUGS (3)
  1. TECFIDERA [Suspect]
     Active Substance: DIMETHYL FUMARATE
     Dosage: MAINTENANCE DOSE
     Route: 065
     Dates: start: 20160212
  2. TECFIDERA [Suspect]
     Active Substance: DIMETHYL FUMARATE
     Indication: MULTIPLE SCLEROSIS
     Dosage: MAINTENANCE DOSE
     Route: 048
     Dates: start: 20131222, end: 20140108
  3. TECFIDERA [Suspect]
     Active Substance: DIMETHYL FUMARATE
     Dosage: MAINTENANCE DOSE
     Route: 065
     Dates: start: 20150402

REACTIONS (8)
  - Fibromyalgia [Unknown]
  - Diabetes mellitus [Unknown]
  - Mobility decreased [Unknown]
  - Pain [Unknown]
  - Arthritis [Unknown]
  - Loss of control of legs [Unknown]
  - Fall [Recovered/Resolved]
  - Cardiac murmur [Unknown]

NARRATIVE: CASE EVENT DATE: 20190103
